FAERS Safety Report 8601711-4 (Version None)
Quarter: 2012Q3

REPORT INFORMATION
  Report Type: 
  Country: None (occurrence: None)
  Receive Date: 20120817
  Receipt Date: 20120131
  Transmission Date: 20120928
  Serious: Yes (Other)
  Sender: FDA-Public Use
  Company Number: US-BRISTOL-MYERS SQUIBB COMPANY-16377012

PATIENT
  Age: 63 Year
  Sex: Female

DRUGS (2)
  1. WARFARIN SODIUM [Suspect]
     Dosage: LAST COUPLE OF MONTHS (6 OR 8 MONTHS
  2. SPRYCEL [Suspect]

REACTIONS (4)
  - POLLAKIURIA [None]
  - COUGH [None]
  - BLOOD URINE PRESENT [None]
  - ATRIAL FIBRILLATION [None]
